FAERS Safety Report 9428952 (Version 1)
Quarter: 2013Q3

REPORT INFORMATION
  Report Type: Report from Study
  Country: US (occurrence: US)
  Receive Date: 20130730
  Receipt Date: 20130730
  Transmission Date: 20140515
  Serious: No
  Sender: FDA-Public Use
  Company Number: US-ABBOTT-13P-163-1040153-00

PATIENT
  Sex: Female
  Weight: 51.76 kg

DRUGS (3)
  1. NIASPAN (COATED) [Suspect]
     Indication: BLOOD CHOLESTEROL INCREASED
     Dosage: IN THE EVENING
     Dates: start: 2009, end: 20130121
  2. BP MEDICATION [Concomitant]
     Indication: BLOOD PRESSURE
  3. ASA [Concomitant]
     Indication: PRODUCT USED FOR UNKNOWN INDICATION
     Dosage: BEFORE THE NIASPAN

REACTIONS (3)
  - Weight decreased [Unknown]
  - Flushing [Not Recovered/Not Resolved]
  - Myalgia [Unknown]
